FAERS Safety Report 17969762 (Version 4)
Quarter: 2020Q3

REPORT INFORMATION
  Report Type: Spontaneous
  Country: PL (occurrence: PL)
  Receive Date: 20200701
  Receipt Date: 20200709
  Transmission Date: 20201103
  Serious: Yes (Hospitalization)
  Sender: FDA-Public Use
  Company Number: PL-IPSEN BIOPHARMACEUTICALS, INC.-2020-11390

PATIENT
  Age: 33 Year
  Sex: Male
  Weight: 76 kg

DRUGS (3)
  1. SOMATULINE AUTOGEL [Suspect]
     Active Substance: LANREOTIDE ACETATE
     Indication: NEUROENDOCRINE CARCINOMA METASTATIC
     Dosage: 120 MG
     Route: 065
     Dates: start: 20200701
  2. ROSWERA [Concomitant]
     Active Substance: ROSUVASTATIN
     Indication: HYPERLIPIDAEMIA
     Dosage: 1X1 FREQUENCY
     Route: 048
     Dates: end: 20200526
  3. SOMATULINE AUTOGEL [Suspect]
     Active Substance: LANREOTIDE ACETATE
     Indication: NEUROENDOCRINE TUMOUR
     Dosage: 1 AMP
     Route: 058
     Dates: start: 20200526, end: 20200605

REACTIONS (2)
  - Intestinal obstruction [Recovered/Resolved with Sequelae]
  - Disease progression [Unknown]

NARRATIVE: CASE EVENT DATE: 20200526
